FAERS Safety Report 5368863-3 (Version None)
Quarter: 2007Q2

REPORT INFORMATION
  Report Type: 
  Country: None (occurrence: None)
  Receive Date: 20070621
  Receipt Date: 20070621
  Transmission Date: 20071010
  Serious: No
  Sender: FDA-Public Use
  Company Number: None

PATIENT
  Age: 46 Year
  Sex: Female
  Weight: 116.1208 kg

DRUGS (1)
  1. SEROQUEL [Suspect]
     Indication: INSOMNIA
     Dosage: 300MG NIGHTLY PO
     Route: 048
     Dates: start: 20061001, end: 20070429

REACTIONS (3)
  - DIABETES MELLITUS [None]
  - HYPERTENSION [None]
  - WEIGHT INCREASED [None]
